FAERS Safety Report 16269627 (Version 1)
Quarter: 2019Q2

REPORT INFORMATION
  Report Type: Spontaneous
  Country: US (occurrence: US)
  Receive Date: 20190503
  Receipt Date: 20190503
  Transmission Date: 20190711
  Serious: Yes (Life-Threatening, Hospitalization, Other)
  Sender: FDA-Public Use
  Company Number: US-MYLANLABS-2019M1041708

PATIENT
  Age: 60 Year
  Sex: Male

DRUGS (1)
  1. AZATHIOPRINE. [Suspect]
     Active Substance: AZATHIOPRINE
     Indication: CROHN^S DISEASE
     Dosage: 200 MILLIGRAM, QD
     Route: 065

REACTIONS (6)
  - Eosinophilic myocarditis [Recovered/Resolved]
  - Nodular rash [Recovered/Resolved]
  - Atrial fibrillation [Recovered/Resolved]
  - Rash pustular [Recovered/Resolved]
  - Cardiogenic shock [Recovered/Resolved]
  - Drug hypersensitivity [Recovered/Resolved]
